FAERS Safety Report 9692727 (Version 2)
Quarter: 2013Q4

REPORT INFORMATION
  Report Type: Spontaneous
  Country: CA (occurrence: CA)
  Receive Date: 20131118
  Receipt Date: 20131219
  Transmission Date: 20140711
  Serious: Yes (Hospitalization)
  Sender: FDA-Public Use
  Company Number: CA-AMGEN-CANSP2013079730

PATIENT
  Age: 67 Year
  Sex: Male
  Weight: 49.89 kg

DRUGS (1)
  1. NPLATE [Suspect]
     Indication: IMMUNE THROMBOCYTOPENIC PURPURA
     Dosage: 150 MUG, QWK
     Route: 065
     Dates: start: 20130501

REACTIONS (5)
  - Blood potassium abnormal [Unknown]
  - Syncope [Unknown]
  - Dyspnoea [Unknown]
  - Cardiac failure [Unknown]
  - Renal failure [Unknown]
